FAERS Safety Report 17275400 (Version 1)
Quarter: 2020Q1

REPORT INFORMATION
  Report Type: Spontaneous
  Country: US (occurrence: US)
  Receive Date: 20200116
  Receipt Date: 20200116
  Transmission Date: 20200409
  Serious: No
  Sender: FDA-Public Use
  Company Number: US-009507513-2001USA000384

PATIENT
  Sex: Female

DRUGS (2)
  1. PREGNYL [Suspect]
     Active Substance: CHORIOGONADOTROPIN ALFA
     Dosage: 10 (UNITS NOT PROVIDED); ONE DOSE EVERY MORNING
     Dates: start: 201906
  2. STERILE DILUENT (WATER) [Suspect]
     Active Substance: WATER
     Dosage: ONE DOSE EVERY MORNING
     Dates: start: 201906

REACTIONS (2)
  - Product dose omission [Unknown]
  - No adverse event [Unknown]

NARRATIVE: CASE EVENT DATE: 201906
